FAERS Safety Report 15308038 (Version 6)
Quarter: 2020Q3

REPORT INFORMATION
  Report Type: Report from Study
  Country: VN (occurrence: VN)
  Receive Date: 20180822
  Receipt Date: 20190621
  Transmission Date: 20201104
  Serious: Yes (Hospitalization)
  Sender: FDA-Public Use
  Company Number: VN-ASTRAZENECA-2018SF05854

PATIENT
  Age: 12494 Day
  Sex: Male

DRUGS (6)
  1. DURVALUMAB. [Suspect]
     Active Substance: DURVALUMAB
     Indication: HEPATOCELLULAR CARCINOMA
     Dosage: 1500 MG
     Route: 042
     Dates: start: 20180821, end: 20180821
  2. DURVALUMAB. [Suspect]
     Active Substance: DURVALUMAB
     Indication: HEPATOCELLULAR CARCINOMA
     Dosage: 1500 MG
     Route: 042
     Dates: start: 20180716, end: 20180716
  3. ENTECAVIR. [Concomitant]
     Active Substance: ENTECAVIR
     Indication: HEPATITIS B
     Route: 048
     Dates: end: 20180913
  4. TREMELIMUMAB. [Suspect]
     Active Substance: TREMELIMUMAB
     Indication: HEPATOCELLULAR CARCINOMA
     Dosage: 75 MG
     Route: 042
     Dates: start: 20180716, end: 20180716
  5. TREMELIMUMAB. [Suspect]
     Active Substance: TREMELIMUMAB
     Indication: HEPATOCELLULAR CARCINOMA
     Dosage: 75 MG
     Route: 042
     Dates: start: 20180821, end: 20180821
  6. OMNIPAQUE [Concomitant]
     Active Substance: IOHEXOL
     Indication: COMPUTERISED TOMOGRAM
     Dosage: 120 ML ONCE (300MG IODINE/ML)
     Route: 042
     Dates: start: 20180709, end: 20180709

REACTIONS (1)
  - Abdominal pain upper [Recovered/Resolved]

NARRATIVE: CASE EVENT DATE: 20180812
